FAERS Safety Report 21934673 (Version 2)
Quarter: 2023Q1

REPORT INFORMATION
  Report Type: Report from Study
  Country: EG (occurrence: EG)
  Receive Date: 20230201
  Receipt Date: 20230204
  Transmission Date: 20230418
  Serious: Yes (Other)
  Sender: FDA-Public Use
  Company Number: EG-002147023-NVSC2023EG017410

PATIENT
  Sex: Female

DRUGS (6)
  1. OMNITROPE [Suspect]
     Active Substance: SOMATROPIN
     Indication: Growth hormone deficiency
     Dosage: 0.8 MG, QD
     Route: 058
     Dates: start: 20220614
  2. OMEGA 3 [Concomitant]
     Active Substance: CAPSAICIN
     Indication: Supplementation therapy
     Dosage: 1 DOSAGE FORM, QD (SINCE BIRTH)
     Route: 048
  3. VIDROP [Concomitant]
     Indication: Supplementation therapy
     Dosage: HALF DROPPER, QD SINCE BIRTH
     Route: 048
  4. MARVIT [Concomitant]
     Indication: Supplementation therapy
     Dosage: 5 CENTIMETRE, QD (SINCE BIRTH)
     Route: 048
  5. FERROGLOBIN [Concomitant]
     Indication: Supplementation therapy
     Dosage: UNK UNK, QD (SINCE BIRTH)
     Route: 048
  6. EUTHYROX [Concomitant]
     Active Substance: LEVOTHYROXINE SODIUM
     Indication: Thyroid disorder
     Dosage: 1 DOSAGE FORM, QD (SINCE FIVE YEARS AGO)
     Route: 048

REACTIONS (11)
  - Gluten sensitivity [Recovering/Resolving]
  - Serum ferritin decreased [Recovering/Resolving]
  - Pallor [Recovering/Resolving]
  - Peripheral coldness [Recovering/Resolving]
  - Skin discolouration [Recovering/Resolving]
  - Dyspnoea [Recovering/Resolving]
  - Disturbance in attention [Recovering/Resolving]
  - Headache [Recovering/Resolving]
  - Device malfunction [Recovered/Resolved]
  - Drug dose omission by device [Not Recovered/Not Resolved]
  - Drug ineffective [Recovered/Resolved]

NARRATIVE: CASE EVENT DATE: 20220101
